FAERS Safety Report 25563513 (Version 1)
Quarter: 2025Q3

REPORT INFORMATION
  Report Type: Spontaneous
  Country: EU (occurrence: EU)
  Receive Date: 20250716
  Receipt Date: 20250716
  Transmission Date: 20251020
  Serious: Yes (Other)
  Sender: HETERO
  Company Number: EU-UCBSA-2025039639

PATIENT
  Age: 15 Year
  Sex: Female

DRUGS (2)
  1. LEVETIRACETAM [Suspect]
     Active Substance: LEVETIRACETAM
     Indication: Juvenile myoclonic epilepsy
     Route: 065
  2. LAMOTRIGINE [Suspect]
     Active Substance: LAMOTRIGINE
     Indication: Juvenile myoclonic epilepsy
     Route: 065

REACTIONS (3)
  - Generalised tonic-clonic seizure [Unknown]
  - Off label use [Unknown]
  - Drug ineffective [Unknown]
